FAERS Safety Report 23079923 (Version 1)
Quarter: 2023Q4

REPORT INFORMATION
  Report Type: Spontaneous
  Country: US (occurrence: None)
  Receive Date: 20231017
  Receipt Date: 20231017
  Transmission Date: 20240110
  Serious: Yes (Hospitalization)
  Sender: FDA-Public Use
  Company Number: None

PATIENT
  Age: 75 Year
  Sex: Male

DRUGS (1)
  1. WARFARIN POTASSIUM [Suspect]
     Active Substance: WARFARIN POTASSIUM
     Dosage: FREQUENCY : DAILY;?
     Route: 048
     Dates: start: 20220422

REACTIONS (4)
  - Subdural haematoma [None]
  - Fall [None]
  - Head injury [None]
  - Cerebral mass effect [None]

NARRATIVE: CASE EVENT DATE: 20230125
